FAERS Safety Report 6822461-0 (Version None)
Quarter: 2010Q3

REPORT INFORMATION
  Report Type: 
  Country: None (occurrence: None)
  Receive Date: 20100707
  Receipt Date: 20100707
  Transmission Date: 20110219
  Serious: Yes (Other)
  Sender: FDA-Public Use
  Company Number: None

PATIENT
  Sex: Male
  Weight: 78.7 kg

DRUGS (1)
  1. AVASTIN [Suspect]
     Indication: ASTROCYTOMA, LOW GRADE
     Dosage: 400 MG Q4 WEEKS PO
     Route: 048
     Dates: start: 20080814, end: 20100614

REACTIONS (6)
  - DIET REFUSAL [None]
  - HYPERTENSION [None]
  - MYOSITIS [None]
  - PAIN [None]
  - PROTEINURIA [None]
  - SENSITIVITY OF TEETH [None]
